FAERS Safety Report 9894836 (Version 1)
Quarter: 2014Q1

REPORT INFORMATION
  Report Type: Spontaneous
  Country: FR (occurrence: FR)
  Receive Date: 20140213
  Receipt Date: 20140213
  Transmission Date: 20141002
  Serious: Yes (Other)
  Sender: FDA-Public Use
  Company Number: PHHY2014FR014748

PATIENT
  Sex: Male

DRUGS (4)
  1. 5-FLUOROURACIL [Suspect]
     Indication: TRANSITIONAL CELL CARCINOMA
     Dosage: 350 MG/M2, Q4W
     Route: 040
  2. FOLINIC ACID [Suspect]
     Indication: TRANSITIONAL CELL CARCINOMA
     Dosage: 20 MG/M2, Q4W
     Route: 040
  3. IFOSFAMIDE [Suspect]
     Indication: TRANSITIONAL CELL CARCINOMA
     Dosage: 1000 MG/M2, Q4W
     Route: 040
  4. MESNA [Concomitant]
     Indication: TRANSITIONAL CELL CARCINOMA
     Dosage: 1200 MG/M2, Q4W
     Route: 042

REACTIONS (2)
  - Encephalopathy [Recovered/Resolved]
  - Neutropenia [Unknown]
